FAERS Safety Report 17150385 (Version 6)
Quarter: 2021Q2

REPORT INFORMATION
  Report Type: Spontaneous
  Country: JP (occurrence: JP)
  Receive Date: 20191213
  Receipt Date: 20210608
  Transmission Date: 20210716
  Serious: Yes (Life-Threatening, Hospitalization, Other)
  Sender: FDA-Public Use
  Company Number: JP-GLAXOSMITHKLINE-JP2019JPN224097

PATIENT
  Age: 22 Year
  Sex: Female

DRUGS (4)
  1. LOXONIN TABLETS [Concomitant]
     Active Substance: LOXOPROFEN SODIUM
     Indication: LYMPH NODE PAIN
     Dosage: 60 MG, 1D
     Route: 048
     Dates: start: 20180717, end: 20180723
  2. LAMICTAL [Suspect]
     Active Substance: LAMOTRIGINE
     Indication: EPILEPSY
     Dosage: 25 MG, QD
     Route: 048
     Dates: start: 20180709, end: 20180723
  3. EPERISONE HYDROCHLORIDE TABLETS [Concomitant]
     Indication: LYMPH NODE PAIN
     Dosage: UNK
     Route: 048
     Dates: start: 20180717, end: 20180723
  4. LOXOPROFEN SODIUM HYDRATE TABLET [Concomitant]
     Indication: LYMPH NODE PAIN
     Dosage: 60 MG
     Route: 048
     Dates: start: 20180717, end: 20180723

REACTIONS (9)
  - Swelling face [Recovering/Resolving]
  - Skin exfoliation [Recovering/Resolving]
  - Face oedema [Recovering/Resolving]
  - Hepatic function abnormal [Recovering/Resolving]
  - Erythema [Recovering/Resolving]
  - Toxic epidermal necrolysis [Recovering/Resolving]
  - Pyrexia [Recovering/Resolving]
  - Lymphadenopathy [Recovering/Resolving]
  - Rash [Recovering/Resolving]

NARRATIVE: CASE EVENT DATE: 20180717
